FAERS Safety Report 16224782 (Version 2)
Quarter: 2019Q2

REPORT INFORMATION
  Report Type: Spontaneous
  Country: DE (occurrence: DE)
  Receive Date: 20190422
  Receipt Date: 20190430
  Transmission Date: 20190711
  Serious: Yes (Hospitalization, Other)
  Sender: FDA-Public Use
  Company Number: DE-PFIZER INC-2019165498

PATIENT
  Sex: Female
  Weight: 97 kg

DRUGS (1)
  1. PACLITAXEL. [Suspect]
     Active Substance: PACLITAXEL
     Dosage: 600 MG/KG, WEEKLY
     Route: 042

REACTIONS (4)
  - Flushing [Unknown]
  - Pulse absent [Unknown]
  - Loss of consciousness [Recovered/Resolved]
  - Hypersensitivity [Unknown]
